FAERS Safety Report 9171235 (Version 1)
Quarter: 2013Q1

REPORT INFORMATION
  Report Type: Spontaneous
  Country: US (occurrence: None)
  Receive Date: 20130318
  Receipt Date: 20130318
  Transmission Date: 20140127
  Serious: Yes (Life-Threatening)
  Sender: FDA-Public Use
  Company Number: None

PATIENT
  Age: 72 Year
  Sex: Female
  Weight: 72.58 kg

DRUGS (1)
  1. AFINITOR [Suspect]
     Dates: start: 201211, end: 201301

REACTIONS (2)
  - Pneumonia [None]
  - Lung disorder [None]
